FAERS Safety Report 17741749 (Version 3)
Quarter: 2022Q1

REPORT INFORMATION
  Report Type: Spontaneous
  Country: CH (occurrence: CH)
  Receive Date: 20200504
  Receipt Date: 20220104
  Transmission Date: 20220424
  Serious: Yes (Hospitalization, Other)
  Sender: FDA-Public Use
  Company Number: CH-SM-2020-12786

PATIENT
  Age: 51 Year
  Sex: Male

DRUGS (29)
  1. PLAQUENIL [Suspect]
     Active Substance: HYDROXYCHLOROQUINE SULFATE
     Dosage: IN TOTAL
     Route: 048
     Dates: start: 20200404, end: 20200404
  2. AMOXICILLIN\CLAVULANATE POTASSIUM [Suspect]
     Active Substance: AMOXICILLIN\CLAVULANATE POTASSIUM
     Dosage: 1.2 G, QID
     Route: 041
     Dates: start: 20200404, end: 20200409
  3. LOPINAVIR\RITONAVIR [Suspect]
     Active Substance: LOPINAVIR\RITONAVIR
     Dosage: 400 MG, BID
     Route: 048
     Dates: start: 20200405, end: 20200405
  4. LOPINAVIR\RITONAVIR [Suspect]
     Active Substance: LOPINAVIR\RITONAVIR
     Dosage: 400 MG, BID
     Route: 048
     Dates: start: 20200407, end: 20200410
  5. ENOXAPARIN SODIUM [Suspect]
     Active Substance: ENOXAPARIN SODIUM
     Dosage: 40 MG, QD
     Route: 058
     Dates: start: 20200405, end: 20200406
  6. ENOXAPARIN SODIUM [Suspect]
     Active Substance: ENOXAPARIN SODIUM
     Dosage: 40 MG, BID
     Route: 058
     Dates: start: 20200407, end: 20200412
  7. ENOXAPARIN SODIUM [Suspect]
     Active Substance: ENOXAPARIN SODIUM
     Dosage: UNK
     Route: 058
     Dates: start: 20200413, end: 20200414
  8. ENOXAPARIN SODIUM [Suspect]
     Active Substance: ENOXAPARIN SODIUM
     Dosage: 40 MG, BID
     Route: 058
     Dates: start: 20200414
  9. ACETAMINOPHEN [Suspect]
     Active Substance: ACETAMINOPHEN
     Dosage: MAX 3X/D ; AS NECESSARY
     Route: 042
     Dates: start: 20200405, end: 20200412
  10. PIPERACILLIN SODIUM\TAZOBACTAM SODIUM [Suspect]
     Active Substance: PIPERACILLIN SODIUM\TAZOBACTAM SODIUM
     Dosage: 4.5 G, TID
     Route: 041
     Dates: start: 20200409, end: 20200412
  11. AZITHROMYCIN [Suspect]
     Active Substance: AZITHROMYCIN
     Dosage: 500 MG, QD
     Route: 048
     Dates: start: 20200405, end: 20200409
  12. ALBUTEROL SULFATE\IPRATROPIUM BROMIDE [Concomitant]
     Active Substance: ALBUTEROL SULFATE\IPRATROPIUM BROMIDE
     Dosage: UNK
     Dates: start: 20200405, end: 20200405
  13. LORAZEPAM [Concomitant]
     Active Substance: LORAZEPAM
     Dates: start: 20200408, end: 20200408
  14. LEVOFLOXACIN [Concomitant]
     Active Substance: LEVOFLOXACIN
     Dates: start: 20200412, end: 20200413
  15. ATRACURIUM [Concomitant]
     Active Substance: ATRACURIUM
     Dosage: UNK
     Dates: start: 20200411
  16. FENTANYL [Concomitant]
     Active Substance: FENTANYL
     Dosage: UNK
     Dates: start: 20200411
  17. MIDAZOLAM HYDROCHLORIDE [Concomitant]
     Active Substance: MIDAZOLAM HYDROCHLORIDE
     Dosage: UNK
     Dates: start: 20200411
  18. PHOSPHATE [POTASSIUM BICARBONATE;SODIUM PHOSPHATE MONOBASIC] [Concomitant]
     Dosage: UNK
     Dates: start: 20200413
  19. ANTIBIOTICS FOR OTIC AND NASAL USE [Concomitant]
     Dosage: UNK
     Dates: start: 20200411
  20. TORSEMIDE [Concomitant]
     Active Substance: TORSEMIDE
     Dates: start: 20200410, end: 20200411
  21. POTASSIUM [Concomitant]
     Active Substance: POTASSIUM
     Dates: start: 20200410, end: 20200411
  22. THIAMINE HYDROCHLORIDE [Concomitant]
     Active Substance: THIAMINE HYDROCHLORIDE
     Dates: start: 20200411, end: 20200411
  23. HEPARIN [Concomitant]
     Active Substance: HEPARIN SODIUM
     Dosage: UNK
     Dates: start: 20200414
  24. SOLU-MEDROL [Concomitant]
     Active Substance: METHYLPREDNISOLONE SODIUM SUCCINATE
     Dosage: UNK
     Dates: start: 20200414
  25. NOVORAPID [Concomitant]
     Active Substance: INSULIN ASPART
     Dosage: UNK
     Dates: start: 20200414
  26. RELISTOR [Concomitant]
     Active Substance: METHYLNALTREXONE BROMIDE
     Dosage: UNK
     Dates: start: 20200414
  27. NOVASOURCE GI CONTROL [Concomitant]
     Dosage: UNK
     Dates: start: 20200411
  28. VENTOLIN [Concomitant]
     Active Substance: ALBUTEROL SULFATE
     Dosage: UNK, PRN
     Dates: start: 20200405, end: 20200412
  29. MOVICOL [Concomitant]
     Active Substance: POLYETHYLENE GLYCOL 3350\POTASSIUM CHLORIDE\SODIUM BICARBONATE\SODIUM CHLORIDE
     Dosage: UNK, PRN
     Dates: start: 20200407, end: 20200412

REACTIONS (19)
  - Hepatocellular injury [Recovered/Resolved]
  - Hepatocellular injury [Recovering/Resolving]
  - Dysphagia [Recovering/Resolving]
  - Hepatic infarction [Recovered/Resolved]
  - Dysphonia [Recovering/Resolving]
  - Arteriosclerosis [Unknown]
  - Hepatic artery occlusion [Unknown]
  - Liver function test increased [Recovering/Resolving]
  - Blood potassium increased [Unknown]
  - Hypoperfusion [Unknown]
  - Electrocardiogram QT prolonged [Recovered/Resolved]
  - Neuropathy peripheral [Unknown]
  - Acute respiratory distress syndrome [Recovered/Resolved]
  - Acute respiratory failure [Unknown]
  - Blood potassium decreased [Recovered/Resolved]
  - Pulmonary embolism [Recovered/Resolved]
  - Intensive care unit acquired weakness [Recovered/Resolved]
  - Splenic infarction [Recovered/Resolved]
  - Off label use [Unknown]

NARRATIVE: CASE EVENT DATE: 20200401
